FAERS Safety Report 4665000-5 (Version None)
Quarter: 2005Q2

REPORT INFORMATION
  Report Type: 
  Country: None (occurrence: None)
  Receive Date: 20050518
  Receipt Date: 20050518
  Transmission Date: 20051028
  Serious: Yes (Hospitalization)
  Sender: FDA-Public Use
  Company Number: None

PATIENT
  Age: 50 Year
  Sex: Female
  Weight: 102 kg

DRUGS (9)
  1. ZITHROMAX [Suspect]
     Indication: PHARYNGOLARYNGEAL PAIN
     Dosage: ? PO
     Route: 048
     Dates: start: 20041021, end: 20041024
  2. ZITHROMAX [Suspect]
     Indication: UPPER RESPIRATORY TRACT INFECTION
     Dosage: ? PO
     Route: 048
     Dates: start: 20041021, end: 20041024
  3. ATIVAN [Concomitant]
  4. GLUCOPHAGE [Concomitant]
  5. NOVOLIN 70/30 [Concomitant]
  6. COMPOUND MOUTHWASH (MAGIC MOUTHWASH) [Concomitant]
  7. PREDNISONE [Concomitant]
  8. NORVASC [Concomitant]
  9. CATAPRES [Concomitant]

REACTIONS (1)
  - STEVENS-JOHNSON SYNDROME [None]
